FAERS Safety Report 8889721 (Version 3)
Quarter: 2013Q2

REPORT INFORMATION
  Report Type: Report from Study
  Country: DE (occurrence: DE)
  Receive Date: 20121107
  Receipt Date: 20130430
  Transmission Date: 20140414
  Serious: Yes (Hospitalization, Other)
  Sender: FDA-Public Use
  Company Number: DE-009507513-1210DEU012355

PATIENT
  Age: 62 Year
  Sex: Female
  Weight: 66 kg

DRUGS (33)
  1. APREPITANT [Suspect]
     Indication: BREAST CANCER
     Dosage: 80 MG,  QD
     Route: 048
     Dates: start: 20121004, end: 20121006
  2. DEXAMETHASONE [Suspect]
     Indication: BREAST CANCER
     Dosage: 8 MG, UNK
     Dates: start: 20121004, end: 20121008
  3. PERTUZUMAB [Suspect]
     Indication: BREAST CANCER
     Dosage: 1 IN 3 WEEKS
     Route: 042
  4. TRASTUZUMAB [Suspect]
     Indication: BREAST CANCER
     Dosage: 8 MG/KG, ONCE
     Route: 042
  5. TRASTUZUMAB [Suspect]
     Dosage: 6 MG/KG, Q3W
     Route: 042
  6. GRANISETRON [Suspect]
     Indication: BREAST CANCER
     Dosage: UNK
  7. CYCLOPHOSPHAMIDE [Suspect]
     Indication: BREAST CANCER
     Dosage: 660 MG, Q3W
     Route: 042
     Dates: start: 20121004
  8. CYCLOPHOSPHAMIDE [Suspect]
     Dosage: 660 MG, Q3W
     Route: 040
  9. CYCLOPHOSPHAMIDE [Suspect]
     Dosage: 660 MG, Q3W
     Route: 040
  10. CYCLOPHOSPHAMIDE [Suspect]
     Dosage: 660 MG, Q3W
     Route: 040
  11. CYCLOPHOSPHAMIDE [Suspect]
     Dosage: 660 MG, Q3W
     Route: 040
  12. CYCLOPHOSPHAMIDE [Suspect]
     Dosage: UNK
  13. EPIRUBICIN HYDROCHLORIDE [Suspect]
     Indication: BREAST CANCER
     Dosage: 172 MG, Q3W
     Route: 042
     Dates: start: 20121004
  14. EPIRUBICIN HYDROCHLORIDE [Suspect]
     Dosage: 172 MG, Q3W
  15. FLUOROURACIL [Suspect]
     Indication: BREAST CANCER
     Dosage: 860 MG, Q3W
     Route: 042
     Dates: start: 20121004
  16. FLUOROURACIL [Suspect]
     Dosage: 860 MG, Q3W
     Route: 040
  17. FLUOROURACIL [Suspect]
     Dosage: 860 MG, Q3W
     Route: 040
  18. FLUOROURACIL [Suspect]
     Dosage: 860 MG, Q3W
     Route: 040
  19. FLUOROURACIL [Suspect]
     Dosage: 860 MG, Q3W
     Route: 040
  20. MESNA [Suspect]
     Indication: BREAST CANCER
     Dosage: UNK
  21. DOCETAXEL [Suspect]
     Indication: BREAST CANCER FEMALE
     Dosage: 100 MG/M2, Q3W
     Route: 042
     Dates: start: 20121210
  22. FLUTICASONE PROPIONATE (+) SALMETEROL XINAFOATE [Concomitant]
     Dosage: 1 HUB
  23. CORTISONE ACETATE [Concomitant]
     Dosage: UNK, PRN
  24. MUPIROCIN [Concomitant]
     Dosage: 3 DF,
     Dates: start: 20121004, end: 20121010
  25. EUTHYROX [Concomitant]
     Dosage: 75 MICROGRAM, DAILY
  26. PANTOPRAZOLE [Concomitant]
     Dosage: 40 MG, DAILY
  27. DEXAMETHASONE [Concomitant]
     Dosage: 16 MG, DAILY
     Route: 048
     Dates: start: 20121004
  28. ACETAMINOPHEN [Concomitant]
     Dosage: 1 DF, PRN
     Dates: start: 20121004
  29. BUSCOPAN [Concomitant]
     Dosage: 1 DF, PRN
     Dates: start: 20121004
  30. DERMATOP [Concomitant]
     Dosage: 1 DF, PRN
     Route: 061
     Dates: start: 20121119
  31. ECURAL [Concomitant]
     Dosage: 1 DF, PRN
     Route: 061
     Dates: start: 20121220
  32. ZOLPIDEM TARTRATE [Concomitant]
     Dosage: 1 DF, PRN
     Dates: start: 20130102
  33. LORATADINE [Concomitant]
     Dosage: 1 DF, UNK

REACTIONS (2)
  - Pancreatitis [Recovered/Resolved]
  - Abdominal pain upper [Recovered/Resolved]
